FAERS Safety Report 9131834 (Version 1)
Quarter: 2013Q1

REPORT INFORMATION
  Report Type: Report from Study
  Country: US (occurrence: US)
  Receive Date: 20130301
  Receipt Date: 20130301
  Transmission Date: 20140127
  Serious: No
  Sender: FDA-Public Use
  Company Number: US-MYLANLABS-2012S1016762

PATIENT
  Age: 16 Year
  Sex: Female

DRUGS (3)
  1. AMNESTEEM CAPSULES [Suspect]
     Indication: ACNE CYSTIC
     Route: 048
     Dates: start: 20120402, end: 20120726
  2. CLARAVIS [Suspect]
     Route: 048
  3. HALOG [Concomitant]
     Indication: RASH
     Route: 061

REACTIONS (5)
  - Mood altered [Not Recovered/Not Resolved]
  - Anxiety [Not Recovered/Not Resolved]
  - Insomnia [Not Recovered/Not Resolved]
  - Emotional disorder [Not Recovered/Not Resolved]
  - Menstruation irregular [Not Recovered/Not Resolved]
